FAERS Safety Report 8187979-X (Version None)
Quarter: 2012Q1

REPORT INFORMATION
  Report Type: 
  Country: None (occurrence: None)
  Receive Date: 20120306
  Receipt Date: 20120225
  Transmission Date: 20120608
  Serious: Yes (Hospitalization, Other)
  Sender: FDA-Public Use
  Company Number: IL-ELI_LILLY_AND_COMPANY-IL201201001731

PATIENT
  Age: 52 Year
  Sex: Male

DRUGS (5)
  1. PEMETREXED [Suspect]
     Indication: NON-SMALL CELL LUNG CANCER
     Dosage: 500 MG/M2, DAY ONE OF EACH CYCLE.
  2. PEMETREXED [Suspect]
     Dosage: 400 MG, OTHER
  3. PEMETREXED [Suspect]
     Dosage: 800 MG, OTHER
  4. IRINOTECAN HYDROCHLORIDE [Concomitant]
     Indication: NON-SMALL CELL LUNG CANCER STAGE II
     Dosage: 150 MG/M2 DAYS 1, 8 EVERY 3 WEEKS.
  5. PEMETREXED [Suspect]
     Dosage: 100-200MG EVERY 1-2 WEEKS

REACTIONS (7)
  - RESPIRATORY DISORDER [None]
  - EMPHYSEMA [None]
  - NEOPLASM PROGRESSION [None]
  - ALVEOLITIS ALLERGIC [None]
  - SKIN TOXICITY [None]
  - OEDEMA PERIPHERAL [None]
  - BLOOD LACTATE DEHYDROGENASE INCREASED [None]
